FAERS Safety Report 18021133 (Version 37)
Quarter: 2025Q1

REPORT INFORMATION
  Report Type: Report from Study
  Country: US (occurrence: US)
  Receive Date: 20200714
  Receipt Date: 20250225
  Transmission Date: 20250408
  Serious: Yes (Hospitalization, Other)
  Sender: TAKEDA
  Company Number: US-SHIRE-US202022280

PATIENT
  Sex: Female
  Weight: 56 kg

DRUGS (87)
  1. HUMAN IMMUNOGLOBULIN G [Suspect]
     Active Substance: HUMAN IMMUNOGLOBULIN G
     Indication: Immunodeficiency common variable
     Dosage: 30 GRAM, Q3WEEKS
     Dates: start: 20180719
  2. HUMAN IMMUNOGLOBULIN G [Suspect]
     Active Substance: HUMAN IMMUNOGLOBULIN G
     Dosage: 30 GRAM, Q3WEEKS
  3. HUMAN IMMUNOGLOBULIN G [Suspect]
     Active Substance: HUMAN IMMUNOGLOBULIN G
     Dosage: 30 GRAM, Q3WEEKS
  4. HUMAN IMMUNOGLOBULIN G [Suspect]
     Active Substance: HUMAN IMMUNOGLOBULIN G
     Dosage: 24 GRAM, Q3WEEKS
     Dates: start: 20181221
  5. HUMAN IMMUNOGLOBULIN G [Suspect]
     Active Substance: HUMAN IMMUNOGLOBULIN G
     Dosage: 30 GRAM, Q3WEEKS
     Dates: start: 20190530
  6. HUMAN IMMUNOGLOBULIN G [Suspect]
     Active Substance: HUMAN IMMUNOGLOBULIN G
     Dosage: 20 GRAM, Q3WEEKS
     Dates: start: 20200616
  7. HUMAN IMMUNOGLOBULIN G [Suspect]
     Active Substance: HUMAN IMMUNOGLOBULIN G
  8. HUMAN IMMUNOGLOBULIN G [Suspect]
     Active Substance: HUMAN IMMUNOGLOBULIN G
     Dosage: 24 GRAM, Q3WEEKS
  9. CUVITRU [Suspect]
     Active Substance: HUMAN IMMUNOGLOBULIN G
     Indication: Immunodeficiency common variable
     Dosage: 20 GRAM, Q2WEEKS
     Dates: start: 20200715
  10. CUVITRU [Suspect]
     Active Substance: HUMAN IMMUNOGLOBULIN G
     Dosage: 10 GRAM, 1/WEEK
  11. CUVITRU [Suspect]
     Active Substance: HUMAN IMMUNOGLOBULIN G
     Dosage: 20 GRAM, Q2WEEKS
     Dates: start: 20200716
  12. CUVITRU [Suspect]
     Active Substance: HUMAN IMMUNOGLOBULIN G
     Dosage: 24 GRAM, Q3WEEKS
  13. CUVITRU [Suspect]
     Active Substance: HUMAN IMMUNOGLOBULIN G
     Dosage: 20 GRAM, Q3WEEKS
  14. CUVITRU [Suspect]
     Active Substance: HUMAN IMMUNOGLOBULIN G
     Dosage: 20 GRAM, Q2WEEKS
  15. DIPHENHYDRAMINE [Concomitant]
     Active Substance: DIPHENHYDRAMINE
  16. FAMCICLOVIR [Concomitant]
     Active Substance: FAMCICLOVIR
  17. TOBRAMYCIN [Concomitant]
     Active Substance: TOBRAMYCIN
  18. DEXAMETHASONE [Concomitant]
     Active Substance: DEXAMETHASONE
  19. HYDRALAZINE HCL [Concomitant]
     Active Substance: HYDRALAZINE HYDROCHLORIDE
  20. ALBUTEROL [Concomitant]
     Active Substance: ALBUTEROL
  21. SYMBICORT [Concomitant]
     Active Substance: BUDESONIDE\FORMOTEROL FUMARATE DIHYDRATE
  22. EPINEPHRINE [Concomitant]
     Active Substance: EPINEPHRINE
  23. SODIUM CHLORIDE [Concomitant]
     Active Substance: SODIUM CHLORIDE
  24. VITAMIN D3 [Concomitant]
     Active Substance: CHOLECALCIFEROL
  25. EUFLEXXA [Concomitant]
     Active Substance: HYALURONATE SODIUM
  26. VITAMIN C [Concomitant]
     Active Substance: ASCORBIC ACID
  27. PROTONIX [Concomitant]
     Active Substance: PANTOPRAZOLE SODIUM
  28. LOTEMAX [Concomitant]
     Active Substance: LOTEPREDNOL ETABONATE
  29. SERTRALINE [Concomitant]
     Active Substance: SERTRALINE HYDROCHLORIDE
  30. TRIAMCINOLONE [Concomitant]
     Active Substance: TRIAMCINOLONE
  31. ROSUVASTATIN CALCIUM [Concomitant]
     Active Substance: ROSUVASTATIN CALCIUM
  32. ZYRTEC [Concomitant]
     Active Substance: CETIRIZINE HYDROCHLORIDE
  33. OFLOXACIN [Concomitant]
     Active Substance: OFLOXACIN
  34. ACETAMINOPHEN [Concomitant]
     Active Substance: ACETAMINOPHEN
  35. METHYLPREDNISOLONE [Concomitant]
     Active Substance: METHYLPREDNISOLONE
  36. ALPRAZOLAM [Concomitant]
     Active Substance: ALPRAZOLAM
  37. DILTIAZEM HYDROCHLORIDE [Concomitant]
     Active Substance: DILTIAZEM HYDROCHLORIDE
  38. ALIGN [Concomitant]
     Active Substance: BIFIDOBACTERIUM LONGUM SUBSP. INFANTIS
  39. SPIRONOLACTONE [Concomitant]
     Active Substance: SPIRONOLACTONE
  40. FLUOROMETHOLONE [Concomitant]
     Active Substance: FLUOROMETHOLONE
  41. GENTAMICIN [Concomitant]
     Active Substance: GENTAMICIN
  42. LIDOCAINE [Concomitant]
     Active Substance: LIDOCAINE
  43. MEDROL [Concomitant]
     Active Substance: METHYLPREDNISOLONE
  44. NOVOLOG [Concomitant]
     Active Substance: INSULIN ASPART
  45. FLOVENT [Concomitant]
     Active Substance: FLUTICASONE PROPIONATE
  46. TRIAMCINOLONE ACETONIDE [Concomitant]
     Active Substance: TRIAMCINOLONE ACETONIDE
  47. CEFPODOXIME PROXETIL [Concomitant]
     Active Substance: CEFPODOXIME PROXETIL
  48. DIETARY SUPPLEMENT [Concomitant]
     Active Substance: DIETARY SUPPLEMENT
  49. DILTIAZEM [Concomitant]
     Active Substance: DILTIAZEM
  50. ENTRESTO [Concomitant]
     Active Substance: SACUBITRIL\VALSARTAN
  51. LASIX [Concomitant]
     Active Substance: FUROSEMIDE
  52. GUAIFENESIN [Concomitant]
     Active Substance: GUAIFENESIN
  53. ZOLPIDEM [Concomitant]
     Active Substance: ZOLPIDEM TARTRATE
  54. VOLTAREN [Concomitant]
     Active Substance: DICLOFENAC SODIUM
  55. PRED FORTE [Concomitant]
     Active Substance: PREDNISOLONE ACETATE
  56. MUPIROCIN [Concomitant]
     Active Substance: MUPIROCIN
  57. AUGMENTIN [Concomitant]
     Active Substance: AMOXICILLIN\CLAVULANATE POTASSIUM
  58. CIPRO [Concomitant]
     Active Substance: CIPROFLOXACIN HYDROCHLORIDE
  59. MACROBID [Concomitant]
     Active Substance: NITROFURANTOIN\NITROFURANTOIN MONOHYDRATE
  60. AZATHIOPRINE [Concomitant]
     Active Substance: AZATHIOPRINE
  61. SPIRIVA RESPIMAT [Concomitant]
     Active Substance: TIOTROPIUM BROMIDE
  62. GANCICLOVIR [Concomitant]
     Active Substance: GANCICLOVIR
  63. TOUJEO [Concomitant]
     Active Substance: INSULIN GLARGINE
  64. AZASITE [Concomitant]
     Active Substance: AZITHROMYCIN MONOHYDRATE
  65. CELLCEPT [Concomitant]
     Active Substance: MYCOPHENOLATE MOFETIL
  66. FLONASE [Concomitant]
     Active Substance: FLUTICASONE PROPIONATE
  67. CARVEDILOL [Concomitant]
     Active Substance: CARVEDILOL
  68. ETHACRYNIC ACID [Concomitant]
     Active Substance: ETHACRYNIC ACID
  69. ALENDRONATE [Concomitant]
     Active Substance: ALENDRONATE SODIUM
  70. HYDROCORTISONE [Concomitant]
     Active Substance: HYDROCORTISONE
  71. DERMOTIC [Concomitant]
     Active Substance: FLUOCINOLONE ACETONIDE
  72. INSULIN NOS [Concomitant]
     Active Substance: INSULIN NOS
  73. ALBUTEROL SULFATE [Concomitant]
     Active Substance: ALBUTEROL SULFATE
  74. PATADAY [Concomitant]
     Active Substance: OLOPATADINE HYDROCHLORIDE
     Dosage: UNK UNK, BID
  75. Forte d [Concomitant]
  76. FLOVENT HFA [Concomitant]
     Active Substance: FLUTICASONE PROPIONATE
  77. SERTRALINE HYDROCHLORIDE [Concomitant]
     Active Substance: SERTRALINE HYDROCHLORIDE
  78. CYPROHEPTADINE HYDROCHLORIDE [Concomitant]
     Active Substance: CYPROHEPTADINE HYDROCHLORIDE
  79. FUROSEMIDE [Concomitant]
     Active Substance: FUROSEMIDE
  80. NIFEDIPINE [Concomitant]
     Active Substance: NIFEDIPINE
  81. TOBRAMYCIN AND DEXAMETHASONE [Concomitant]
     Active Substance: DEXAMETHASONE\TOBRAMYCIN
  82. COREG [Concomitant]
     Active Substance: CARVEDILOL
  83. MACRODANTIN [Concomitant]
     Active Substance: NITROFURANTOIN
  84. CIPRODEX [Concomitant]
     Active Substance: CIPROFLOXACIN HYDROCHLORIDE\DEXAMETHASONE
  85. MELATONIN [Concomitant]
     Active Substance: MELATONIN
  86. DIPHENHYDRAMINE HYDROCHLORIDE [Concomitant]
     Active Substance: DIPHENHYDRAMINE HYDROCHLORIDE
  87. ROSUVASTATIN [Concomitant]
     Active Substance: ROSUVASTATIN

REACTIONS (24)
  - Limb injury [Unknown]
  - Urinary tract infection bacterial [Unknown]
  - Polychondritis [Unknown]
  - Pneumonia [Recovered/Resolved]
  - Hypertension [Unknown]
  - Blood pressure increased [Unknown]
  - Ear infection [Unknown]
  - Incorrect drug administration rate [Unknown]
  - Product dose omission issue [Unknown]
  - Inappropriate schedule of product administration [Unknown]
  - Eye infection [Unknown]
  - Bronchitis [Unknown]
  - Stress fracture [Unknown]
  - Fall [Unknown]
  - Ear swelling [Unknown]
  - Peripheral swelling [Unknown]
  - Blood immunoglobulin G decreased [Unknown]
  - Skin laceration [Unknown]
  - Foot fracture [Unknown]
  - Sinusitis [Unknown]
  - Infusion site haemorrhage [Recovered/Resolved]
  - Back pain [Unknown]
  - Fatigue [Unknown]
  - Headache [Unknown]
